FAERS Safety Report 23154438 (Version 2)
Quarter: 2023Q4

REPORT INFORMATION
  Report Type: Spontaneous
  Country: RU (occurrence: RU)
  Receive Date: 20231107
  Receipt Date: 20231122
  Transmission Date: 20240110
  Serious: Yes (Other)
  Sender: FDA-Public Use
  Company Number: RU-GE HEALTHCARE-2023CSU009869

PATIENT
  Sex: Male

DRUGS (2)
  1. OMNISCAN [Suspect]
     Active Substance: GADODIAMIDE
     Indication: Neoplasm malignant
     Dosage: 20 ML, SINGLE
     Route: 065
  2. OMNISCAN [Suspect]
     Active Substance: GADODIAMIDE
     Indication: Product used for unknown indication

REACTIONS (2)
  - Blood pressure decreased [Unknown]
  - Disorientation [Unknown]
